FAERS Safety Report 4910745-2 (Version None)
Quarter: 2006Q1

REPORT INFORMATION
  Report Type: 
  Country: None (occurrence: None)
  Receive Date: 20060214
  Receipt Date: 20060203
  Transmission Date: 20060701
  Serious: Yes (Death, Other)
  Sender: FDA-Public Use
  Company Number: JP-BRISTOL-MYERS SQUIBB COMPANY-13278882

PATIENT
  Age: 38 Year
  Sex: Male

DRUGS (3)
  1. ENDOXAN [Suspect]
     Indication: THYMOMA
     Route: 042
  2. CISPLATIN [Concomitant]
     Indication: THYMOMA
  3. RADIATION THERAPY [Concomitant]
     Indication: THYMOMA

REACTIONS (2)
  - LUNG NEOPLASM MALIGNANT [None]
  - TREATMENT RELATED SECONDARY MALIGNANCY [None]
